FAERS Safety Report 9540385 (Version 1)
Quarter: 2013Q2

REPORT INFORMATION
  Report Type: Spontaneous
  Country: US (occurrence: None)
  Receive Date: 20130531
  Receipt Date: 20130531
  Transmission Date: 20140414
  Serious: Yes (Other)
  Sender: FDA-Public Use
  Company Number: 1212USA007604

PATIENT
  Age: 62 Year
  Sex: Female

DRUGS (2)
  1. FOSAMAX [Suspect]
     Indication: OSTEOPENIA
     Route: 048
     Dates: start: 19980424, end: 19981001
  2. FOSAMAX PLUS D (ALENDRONATE SODIUM (+) CHOLECLCIFEROL) TABLET [Suspect]
     Indication: OSTEOPENIA
     Route: 048
     Dates: start: 20060126, end: 20070404

REACTIONS (12)
  - Osteonecrosis of jaw [None]
  - Dental fistula [None]
  - Temporomandibular joint syndrome [None]
  - Edentulous [None]
  - Hormone replacement therapy [None]
  - Asthma [None]
  - Tinnitus [None]
  - Fistula [None]
  - Dental caries [None]
  - Tooth fracture [None]
  - Tooth abscess [None]
  - Tooth loss [None]
